FAERS Safety Report 10078688 (Version 1)
Quarter: 2014Q2

REPORT INFORMATION
  Report Type: Spontaneous
  Country: PL (occurrence: None)
  Receive Date: 20140411
  Receipt Date: 20140411
  Transmission Date: 20141212
  Serious: Yes (Life-Threatening, Hospitalization)
  Sender: FDA-Public Use
  Company Number: AUR-APL-2014-04267

PATIENT
  Age: 46 Year
  Sex: Female

DRUGS (2)
  1. MOTELUKAST [Suspect]
     Indication: ASTHMA
  2. CICLESONIDE [Suspect]
     Indication: ASTHMA
     Dosage: 640 MG 2 IN 1 D

REACTIONS (10)
  - Asthma [None]
  - Loss of consciousness [None]
  - Dyspnoea [None]
  - Drug effect decreased [None]
  - Tachycardia [None]
  - Hypopnoea [None]
  - Cardiac murmur [None]
  - Heart rate increased [None]
  - Blood pressure decreased [None]
  - Syncope [None]
